FAERS Safety Report 7095405-7 (Version None)
Quarter: 2010Q4

REPORT INFORMATION
  Report Type: 
  Country: None (occurrence: None)
  Receive Date: 20101018
  Receipt Date: 20091123
  Transmission Date: 20110411
  Serious: Yes (Other)
  Sender: FDA-Public Use
  Company Number: US-WYE-H12298109

PATIENT
  Age: 47 Year

DRUGS (4)
  1. PREMARIN [Suspect]
  2. CYCRIN [Suspect]
  3. ESTRATEST HS (ESTROGENS ESTERIFIED/METHYLTESTOTERONE, ) [Suspect]
  4. PROVERA [Suspect]

REACTIONS (2)
  - BREAST CANCER [None]
  - MYOCARDIAL INFARCTION [None]
